FAERS Safety Report 13986021 (Version 6)
Quarter: 2017Q4

REPORT INFORMATION
  Report Type: Spontaneous
  Country: BR (occurrence: BR)
  Receive Date: 20170919
  Receipt Date: 20171124
  Transmission Date: 20180321
  Serious: Yes (Hospitalization, Other)
  Sender: FDA-Public Use
  Company Number: BR-AMGEN-BRASP2017136421

PATIENT
  Age: 77 Year
  Sex: Female

DRUGS (1)
  1. ENBREL [Suspect]
     Active Substance: ETANERCEPT
     Indication: RHEUMATOID ARTHRITIS
     Dosage: 1 (UNKNOWN UNIT), WEEKLY
     Route: 065
     Dates: start: 20170727

REACTIONS (9)
  - Lung infection [Recovered/Resolved]
  - Cardiac infection [Recovered/Resolved]
  - Kidney infection [Recovered/Resolved]
  - Dyspnoea [Recovered/Resolved]
  - Pneumonia [Unknown]
  - Heart rate increased [Recovered/Resolved]
  - Feeling abnormal [Not Recovered/Not Resolved]
  - Urinary retention [Recovered/Resolved]
  - Blood pressure increased [Recovered/Resolved]

NARRATIVE: CASE EVENT DATE: 2017
